FAERS Safety Report 19658478 (Version 2)
Quarter: 2021Q3

REPORT INFORMATION
  Report Type: Report from Study
  Country: US (occurrence: US)
  Receive Date: 20210805
  Receipt Date: 20210823
  Transmission Date: 20211014
  Serious: Yes (Death, Other)
  Sender: FDA-Public Use
  Company Number: US-AUROBINDO-AUR-APL-2021-033364

PATIENT
  Age: 74 Year
  Sex: Male
  Weight: 75.4 kg

DRUGS (1)
  1. BELINOSTAT [Suspect]
     Active Substance: BELINOSTAT
     Indication: ACUTE MYELOID LEUKAEMIA
     Dosage: UNK
     Route: 065

REACTIONS (20)
  - Hypophosphataemia [Unknown]
  - Dry skin [Unknown]
  - Abdominal pain [Unknown]
  - Hypotension [Unknown]
  - Sepsis [Unknown]
  - Alanine aminotransferase increased [Unknown]
  - Blood bilirubin increased [Unknown]
  - Hypocalcaemia [Unknown]
  - Pruritus [Unknown]
  - Pollakiuria [Unknown]
  - Constipation [Unknown]
  - Hypokalaemia [Unknown]
  - Febrile neutropenia [Unknown]
  - Nausea [Unknown]
  - Eczema [Unknown]
  - Fatigue [Unknown]
  - Decreased appetite [Unknown]
  - Pneumonia [Fatal]
  - Hypoxia [Unknown]
  - Anaemia [Unknown]
